FAERS Safety Report 13577446 (Version 3)
Quarter: 2017Q3

REPORT INFORMATION
  Report Type: Spontaneous
  Country: RO (occurrence: RO)
  Receive Date: 20170524
  Receipt Date: 20170714
  Transmission Date: 20171127
  Serious: Yes (Hospitalization, Other)
  Sender: FDA-Public Use
  Company Number: RO-ASTRAZENECA-2017SE52323

PATIENT
  Age: 530 Month
  Sex: Female
  Weight: 60 kg

DRUGS (5)
  1. OMEPRAZOLE. [Suspect]
     Active Substance: OMEPRAZOLE
     Indication: GASTROOESOPHAGEAL REFLUX DISEASE
     Route: 048
     Dates: start: 201510, end: 20160517
  2. LEVOTHYROXINE. [Concomitant]
     Active Substance: LEVOTHYROXINE
  3. THIOCTIC ACID [Concomitant]
     Active Substance: THIOCTIC ACID
  4. LAGOSA [Concomitant]
     Dosage: TWO TABLETS PER DAY
  5. OMEPRAZOLE. [Suspect]
     Active Substance: OMEPRAZOLE
     Indication: GASTROOESOPHAGEAL REFLUX DISEASE
     Route: 048

REACTIONS (1)
  - Blood chromogranin A increased [Recovered/Resolved]

NARRATIVE: CASE EVENT DATE: 201510
